FAERS Safety Report 11227343 (Version 1)
Quarter: 2015Q2

REPORT INFORMATION
  Report Type: Spontaneous
  Country: US (occurrence: US)
  Receive Date: 20150630
  Receipt Date: 20150630
  Transmission Date: 20150821
  Serious: Yes (Hospitalization)
  Sender: FDA-Public Use
  Company Number: US-PROCTER_AND_GAMBLE-CIO15031434

PATIENT
  Age: 67 Year
  Sex: Female
  Weight: 87.53 kg

DRUGS (6)
  1. ALIGN [Suspect]
     Active Substance: BIFIDOBACTERIUM LONGUM SUBSP. INFANTIS
     Indication: GASTRIC DISORDER
  2. METOPROLOL [Concomitant]
     Active Substance: METOPROLOL
  3. ALIGN [Suspect]
     Active Substance: BIFIDOBACTERIUM LONGUM SUBSP. INFANTIS
     Indication: ILL-DEFINED DISORDER
     Dosage: 1 PILL, ONCE A DAY
     Route: 048
     Dates: start: 20150408, end: 20150512
  4. LASIX [Concomitant]
     Active Substance: FUROSEMIDE
  5. UNSPECIFIED [Concomitant]
     Active Substance: UNSPECIFIED INGREDIENT
  6. AMBIEN [Concomitant]
     Active Substance: ZOLPIDEM TARTRATE

REACTIONS (8)
  - Product blister packaging issue [None]
  - Dyspepsia [Recovered/Resolved]
  - Foreign body [Recovered/Resolved]
  - Condition aggravated [Recovered/Resolved]
  - Peripheral swelling [Recovered/Resolved]
  - Oesophageal pain [Recovered/Resolved]
  - Abdominal pain upper [Recovered/Resolved]
  - Sensation of foreign body [Recovered/Resolved]

NARRATIVE: CASE EVENT DATE: 20150408
